FAERS Safety Report 24291382 (Version 1)
Quarter: 2024Q3

REPORT INFORMATION
  Report Type: Spontaneous
  Country: US (occurrence: None)
  Receive Date: 20240906
  Receipt Date: 20240906
  Transmission Date: 20241017
  Serious: No
  Sender: DOMPE FARMACEUTICI
  Company Number: US-FARMAPROD-202308-2501

PATIENT
  Age: 76 Year
  Sex: Male

DRUGS (11)
  1. OXERVATE [Suspect]
     Active Substance: CENEGERMIN-BKBJ
     Indication: Neurotrophic keratopathy
     Route: 047
     Dates: start: 20230818
  2. OXERVATE [Suspect]
     Active Substance: CENEGERMIN-BKBJ
  3. COMBIGAN [Concomitant]
     Active Substance: BRIMONIDINE TARTRATE\TIMOLOL MALEATE
     Dosage: 0.2%-0.5%
  4. LOTEMAX [Concomitant]
     Active Substance: LOTEPREDNOL ETABONATE
     Dosage: DROPS GEL.
  5. TRESIBA [Concomitant]
     Active Substance: INSULIN DEGLUDEC
     Dosage: A FLEXTOUCH U-100
  6. CARVEDILOL [Concomitant]
     Active Substance: CARVEDILOL
  7. CALCITRIOL [Concomitant]
     Active Substance: CALCITRIOL
  8. ALLOPURINOL [Concomitant]
     Active Substance: ALLOPURINOL
  9. NIFEDIPINE [Concomitant]
     Active Substance: NIFEDIPINE
     Dosage: EXTENDED RELEASE 24 HOURS.
  10. POTASSIUM CHLORIDE [Concomitant]
     Active Substance: POTASSIUM CHLORIDE
  11. ASPIRIN [Concomitant]
     Active Substance: ASPIRIN

REACTIONS (3)
  - Nasopharyngitis [Unknown]
  - Eye pain [Unknown]
  - Device use issue [Unknown]

NARRATIVE: CASE EVENT DATE: 20230818
